FAERS Safety Report 16975691 (Version 1)
Quarter: 2019Q4

REPORT INFORMATION
  Report Type: Spontaneous
  Country: US (occurrence: US)
  Receive Date: 20191030
  Receipt Date: 20191030
  Transmission Date: 20200122
  Serious: No
  Sender: FDA-Public Use
  Company Number: US-BAUSCH-BL-2019-026011

PATIENT
  Sex: Female

DRUGS (3)
  1. ARESTIN [Suspect]
     Active Substance: MINOCYCLINE HYDROCHLORIDE
     Route: 065
     Dates: start: 201903, end: 201903
  2. ARESTIN [Suspect]
     Active Substance: MINOCYCLINE HYDROCHLORIDE
     Route: 065
     Dates: start: 201907, end: 201907
  3. ARESTIN [Suspect]
     Active Substance: MINOCYCLINE HYDROCHLORIDE
     Indication: GINGIVAL RECESSION
     Dosage: PLACED SEVERAL TIMES, AS NEEDED
     Route: 065

REACTIONS (5)
  - Cheilitis [Unknown]
  - Gingival pain [Unknown]
  - Dysphonia [Unknown]
  - Throat tightness [Unknown]
  - Discomfort [Unknown]

NARRATIVE: CASE EVENT DATE: 201906
